FAERS Safety Report 6400943-3 (Version None)
Quarter: 2009Q4

REPORT INFORMATION
  Report Type: 
  Country: None (occurrence: None)
  Receive Date: 20091009
  Receipt Date: 20090929
  Transmission Date: 20100525
  Serious: Yes (Hospitalization)
  Sender: FDA-Public Use
  Company Number: 8042798

PATIENT
  Age: 68 Year
  Sex: Male
  Weight: 76.3 kg

DRUGS (28)
  1. CIMZIA [Suspect]
     Indication: CROHN'S DISEASE
     Dosage: 400 MG 1/2W SC
     Route: 058
     Dates: start: 20081027
  2. CIMZIA [Suspect]
     Indication: CROHN'S DISEASE
     Dosage: 400 MG /W SC
     Route: 058
     Dates: start: 20081223
  3. PREDNISONE [Concomitant]
  4. ENTOCORT EC [Concomitant]
  5. ANDROGEL [Concomitant]
  6. OXYCONTIN [Concomitant]
  7. SLOW-FE [Concomitant]
  8. AMIODARONE [Concomitant]
  9. TOPROL-XL [Concomitant]
  10. ENTOCORT EC [Concomitant]
  11. VITAMIN B-12 [Concomitant]
  12. LOMOTIL /00034001/ [Concomitant]
  13. BENTYL [Concomitant]
  14. CARTIA XT /00489701/ [Concomitant]
  15. COUMADIN [Concomitant]
  16. FOSAMAX [Concomitant]
  17. ALLOPURINOL [Concomitant]
  18. MULTI-VITAMIN [Concomitant]
  19. SLO IRON [Concomitant]
  20. NEXIUM [Concomitant]
  21. CYMBALTA [Concomitant]
  22. ZYPREXA [Concomitant]
  23. SLEEP AID [Concomitant]
  24. COREG [Concomitant]
  25. LISINOPRIL [Concomitant]
  26. FUROSMIDE [Concomitant]
  27. ACTOS [Concomitant]
  28. GLYBURIDE [Concomitant]

REACTIONS (12)
  - ABDOMINAL PAIN [None]
  - ANAEMIA [None]
  - ATRIAL FIBRILLATION [None]
  - CHEST PAIN [None]
  - DEVICE LEAKAGE [None]
  - DYSPNOEA [None]
  - INCORRECT DOSE ADMINISTERED [None]
  - NAUSEA [None]
  - OEDEMA PERIPHERAL [None]
  - PLATELET COUNT DECREASED [None]
  - PROSTATE CANCER [None]
  - VOMITING [None]
